FAERS Safety Report 8798412 (Version 1)
Quarter: 2012Q4

REPORT INFORMATION
  Report Type: 
  Country: IT (occurrence: IT)
  Receive Date: 20120920
  Receipt Date: 20120920
  Transmission Date: 20130627
  Serious: Yes (Other)
  Sender: FDA-Public Use
  Company Number: IT-ASTRAZENECA-2012SE71582

PATIENT
  Age: 61 Year
  Sex: Female

DRUGS (7)
  1. ARIMIDEX [Suspect]
     Indication: BREAST CANCER
     Route: 048
  2. CARDIOASPIRINA [Concomitant]
  3. SIMVASTATIN [Concomitant]
  4. URSODEOXYCHOLIC ACID [Concomitant]
  5. RAMIPRIL [Concomitant]
  6. PANTOPRAZOLE [Concomitant]
  7. SERTRALINE [Concomitant]

REACTIONS (1)
  - Stomatitis [Unknown]
